FAERS Safety Report 6994217-X (Version None)
Quarter: 2010Q3

REPORT INFORMATION
  Report Type: 
  Country: None (occurrence: None)
  Receive Date: 20100917
  Receipt Date: 20100716
  Transmission Date: 20110219
  Serious: Yes (Other)
  Sender: FDA-Public Use
  Company Number: US-ASTRAZENECA-2010SE33320

PATIENT

DRUGS (2)
  1. SEROQUEL [Suspect]
     Route: 048
  2. GEODON [Suspect]
     Route: 065

REACTIONS (1)
  - CONFUSIONAL STATE [None]
